FAERS Safety Report 17236057 (Version 2)
Quarter: 2020Q1

REPORT INFORMATION
  Report Type: Report from Study
  Country: CA (occurrence: CA)
  Receive Date: 20200106
  Receipt Date: 20200114
  Transmission Date: 20200409
  Serious: Yes (Hospitalization)
  Sender: FDA-Public Use
  Company Number: CA-CELGENEUS-CAN-20191211292

PATIENT
  Age: 64 Year
  Sex: Female
  Weight: 55.8 kg

DRUGS (3)
  1. CISPLATIN. [Suspect]
     Active Substance: CISPLATIN
     Indication: CHOLANGIOCARCINOMA
     Dosage: 40 MILLIGRAM
     Route: 065
     Dates: start: 20191119
  2. ABRAXANE [Suspect]
     Active Substance: PACLITAXEL
     Indication: CHOLANGIOCARCINOMA
     Dosage: 160 MILLIGRAM
     Route: 065
     Dates: start: 20191119
  3. GEMCITABINE. [Suspect]
     Active Substance: GEMCITABINE
     Indication: CHOLANGIOCARCINOMA
     Dosage: 1290 MILLIGRAM
     Route: 065
     Dates: start: 20191119

REACTIONS (2)
  - Electrolyte imbalance [Recovered/Resolved]
  - Influenza like illness [Recovered/Resolved]

NARRATIVE: CASE EVENT DATE: 20191223
